FAERS Safety Report 8486405-0 (Version None)
Quarter: 2012Q3

REPORT INFORMATION
  Report Type: 
  Country: None (occurrence: None)
  Receive Date: 20120703
  Receipt Date: 20120625
  Transmission Date: 20120928
  Serious: Yes (Hospitalization)
  Sender: FDA-Public Use
  Company Number: DE-BRISTOL-MYERS SQUIBB COMPANY-16709925

PATIENT
  Age: 66 Year
  Sex: Male

DRUGS (10)
  1. DURAGESIC-100 [Concomitant]
     Dates: start: 20120501
  2. EZETIMIBE [Concomitant]
  3. ASPIRIN [Concomitant]
  4. PANTOPRAZOLE [Concomitant]
     Dates: start: 20120501
  5. THEOPHYLLINE [Concomitant]
  6. PROCHLORPERAZINE [Concomitant]
     Dates: start: 20120601
  7. CARBOPLATIN [Suspect]
     Indication: NON-SMALL CELL LUNG CANCER
     Route: 042
     Dates: start: 20120605, end: 20120605
  8. SIMVASTATIN [Concomitant]
  9. PACLITAXEL [Suspect]
     Indication: NON-SMALL CELL LUNG CANCER
     Route: 042
     Dates: start: 20120605, end: 20120605
  10. ROFLUMILAST [Concomitant]
     Dates: start: 20110401

REACTIONS (2)
  - NEOPLASM MALIGNANT [None]
  - SUBILEUS [None]
